FAERS Safety Report 22628959 (Version 1)
Quarter: 2023Q2

REPORT INFORMATION
  Report Type: Other
  Country: BR (occurrence: None)
  Receive Date: 20230622
  Receipt Date: 20230622
  Transmission Date: 20230722
  Serious: Yes (Hospitalization)
  Sender: FDA-Public Use
  Company Number: BR-ROCHE-3369179

PATIENT
  Age: 2 Year
  Sex: Male

DRUGS (1)
  1. RISDIPLAM [Suspect]
     Active Substance: RISDIPLAM
     Indication: Spinal muscular atrophy
     Route: 065

REACTIONS (10)
  - Tracheostomy [Unknown]
  - Mechanical ventilation [Unknown]
  - Oxygen saturation abnormal [Unknown]
  - Hypertension [Unknown]
  - Diarrhoea [Unknown]
  - Papule [Unknown]
  - Exfoliative rash [Unknown]
  - Blood pressure fluctuation [Unknown]
  - Pyrexia [Unknown]
  - Hair growth abnormal [Unknown]
